FAERS Safety Report 6008217-X (Version None)
Quarter: 2008Q4

REPORT INFORMATION
  Report Type: 
  Country: None (occurrence: None)
  Receive Date: 20081217
  Receipt Date: 20080728
  Transmission Date: 20090506
  Serious: No
  Sender: FDA-Public Use
  Company Number: US-ASTRAZENECA-2008UW15483

PATIENT
  Age: 71 Year
  Sex: Female
  Weight: 91.6 kg

DRUGS (10)
  1. CRESTOR [Suspect]
     Indication: BLOOD CHOLESTEROL
     Route: 048
     Dates: start: 20080801
  2. LISINOPRIL [Concomitant]
  3. ALLOPURINOL [Concomitant]
  4. LOPRESSOR [Concomitant]
  5. BUTAMIDE [Concomitant]
  6. FOSAMAX [Concomitant]
  7. PLAVIX [Concomitant]
  8. RANITIDINE [Concomitant]
  9. LANTUS [Concomitant]
  10. NOVOLOG [Concomitant]

REACTIONS (1)
  - COUGH [None]
